FAERS Safety Report 24530917 (Version 1)
Quarter: 2024Q4

REPORT INFORMATION
  Report Type: Spontaneous
  Country: FR (occurrence: FR)
  Receive Date: 20241021
  Receipt Date: 20241021
  Transmission Date: 20250114
  Serious: Yes (Hospitalization)
  Sender: ABBVIE
  Company Number: None

PATIENT
  Age: 40 Year
  Sex: Female

DRUGS (1)
  1. BOTULINUM TOXIN TYPE A [Suspect]
     Active Substance: BOTULINUM TOXIN TYPE A
     Indication: Skin wrinkling
     Dosage: TIME INTERVAL: AS NECESSARY: 1DF DOSAGE FORM: 1FP
     Route: 023
     Dates: start: 20240818, end: 20240818

REACTIONS (1)
  - Botulism [Recovering/Resolving]

NARRATIVE: CASE EVENT DATE: 20240820
